FAERS Safety Report 7407585-1 (Version None)
Quarter: 2011Q2

REPORT INFORMATION
  Report Type: 
  Country: None (occurrence: None)
  Receive Date: 20110412
  Receipt Date: 20110328
  Transmission Date: 20111010
  Serious: Yes (Other)
  Sender: FDA-Public Use
  Company Number: JP-CELGENEUS-087-21880-10121090

PATIENT
  Sex: Female

DRUGS (26)
  1. REVLIMID [Suspect]
     Dosage: 20 MILLIGRAM
     Route: 048
     Dates: start: 20101101, end: 20101121
  2. REVLIMID [Suspect]
     Dosage: 20 MILLIGRAM
     Route: 048
     Dates: start: 20101129, end: 20101219
  3. MAGNESIUM OXIDE [Concomitant]
     Indication: PROPHYLAXIS
     Dosage: 1.5 GRAM
     Route: 048
     Dates: start: 20100831, end: 20100914
  4. GLYCYRON [Concomitant]
     Dosage: 6 TABLET
     Route: 048
     Dates: start: 20100831, end: 20100914
  5. REVLIMID [Suspect]
     Dosage: 10 MILLIGRAM
     Route: 048
     Dates: start: 20100922, end: 20100926
  6. REVLIMID [Suspect]
     Dosage: 20 MILLIGRAM
     Route: 048
     Dates: start: 20101227, end: 20110116
  7. MICARDIS [Concomitant]
     Indication: HYPERTENSION
     Dosage: 60 MILLIGRAM
     Route: 048
     Dates: start: 20100831, end: 20100914
  8. KLARICID [Concomitant]
     Indication: PROPHYLAXIS
     Dosage: 400 MILLIGRAM
     Route: 048
     Dates: start: 20100831, end: 20100914
  9. REBAMIPIDE [Concomitant]
     Indication: PROPHYLAXIS
     Dosage: 300 MILLIGRAM
     Route: 048
     Dates: start: 20100831, end: 20100914
  10. TAKEPRON [Concomitant]
     Indication: PROPHYLAXIS
     Dosage: 15 MILLIGRAM
     Route: 048
     Dates: start: 20100831, end: 20100914
  11. CORTRIL [Concomitant]
     Indication: PROPHYLAXIS
     Dosage: 40 MILLIGRAM
     Route: 048
     Dates: start: 20100831, end: 20100914
  12. REVLIMID [Suspect]
     Dosage: 20 MILLIGRAM
     Route: 048
     Dates: start: 20110221, end: 20110313
  13. GLYCYRON [Concomitant]
  14. REVLIMID [Suspect]
     Dosage: 5 MILLIGRAM
     Route: 048
     Dates: start: 20100915, end: 20100921
  15. REVLIMID [Suspect]
     Dosage: 15 MILLIGRAM
     Route: 048
     Dates: start: 20100927, end: 20101003
  16. REVLIMID [Suspect]
     Dosage: 20 MILLIGRAM
     Route: 048
     Dates: start: 20110124, end: 20110213
  17. ASPIRIN [Concomitant]
     Indication: PROPHYLAXIS
     Dosage: 100 MILLIGRAM
     Route: 048
     Dates: start: 20100831, end: 20100906
  18. DECADRON [Suspect]
     Indication: MULTIPLE MYELOMA
     Dosage: 20 MILLIGRAM
     Route: 048
     Dates: start: 20100831, end: 20100903
  19. AMLODIN [Concomitant]
     Indication: HYPERTENSION
     Dosage: 5 MILLIGRAM
     Route: 048
     Dates: start: 20100831, end: 20100914
  20. BROTIZOLAM [Concomitant]
     Indication: INSOMNIA
     Dosage: .25 MILLIGRAM
     Route: 048
     Dates: start: 20100831, end: 20100914
  21. BROTIZOLAM [Concomitant]
  22. SLOW-K [Concomitant]
     Indication: INSOMNIA
     Dosage: 1200 MILLIGRAM
     Route: 048
     Dates: start: 20100831, end: 20100914
  23. SLOW-K [Concomitant]
  24. REVLIMID [Suspect]
     Indication: MULTIPLE MYELOMA
     Dosage: 25 MILLIGRAM
     Route: 048
     Dates: start: 20100831, end: 20100906
  25. REVLIMID [Suspect]
     Dosage: 20 MILLIGRAM
     Route: 048
     Dates: start: 20101004, end: 20101024
  26. BIOFERMIN [Concomitant]
     Indication: PROPHYLAXIS
     Dosage: 36 MILLIGRAM
     Route: 048
     Dates: start: 20100831, end: 20100914

REACTIONS (10)
  - BLOOD AMYLASE INCREASED [None]
  - HEPATIC ENZYME INCREASED [None]
  - BACK PAIN [None]
  - PHARYNGITIS [None]
  - THROMBOCYTOPENIA [None]
  - ANAEMIA [None]
  - ORAL CANDIDIASIS [None]
  - WHITE BLOOD CELL COUNT DECREASED [None]
  - NEUROPATHY PERIPHERAL [None]
  - NEUTROPHIL COUNT DECREASED [None]
